FAERS Safety Report 8318402-X (Version None)
Quarter: 2012Q2

REPORT INFORMATION
  Report Type: 
  Country: None (occurrence: None)
  Receive Date: 20120427
  Receipt Date: 20120418
  Transmission Date: 20120825
  Serious: Yes (Hospitalization)
  Sender: FDA-Public Use
  Company Number: AR-JNJFOC-20120409555

PATIENT
  Age: 2 Year
  Sex: Male
  Weight: 13.5 kg

DRUGS (2)
  1. IBUPROFEN [Suspect]
     Indication: TOOTHACHE
     Dosage: 8ML SINGLE
     Route: 048
     Dates: start: 20120413
  2. LACTULON [Concomitant]
     Route: 065

REACTIONS (4)
  - LOSS OF CONSCIOUSNESS [None]
  - HYPOTHERMIA [None]
  - OVERDOSE [None]
  - EYE MOVEMENT DISORDER [None]
